FAERS Safety Report 8683879 (Version 2)
Quarter: 2012Q4

REPORT INFORMATION
  Report Type: 
  Country: FR (occurrence: FR)
  Receive Date: 20120726
  Receipt Date: 20121012
  Transmission Date: 20130627
  Serious: Yes (Hospitalization, Other)
  Sender: FDA-Public Use
  Company Number: FR-TEVA-350232ISR

PATIENT
  Sex: Female

DRUGS (3)
  1. ACTIQ [Suspect]
     Indication: PAIN
     Dosage: 7200 Microgram Daily; 9 lozenges of Actiq 800 mcg per day
     Route: 048
     Dates: start: 201110
  2. DUROGESIC [Concomitant]
     Indication: PAIN
     Dosage: 25 mcg/h, 1 patch every 72 hours
     Route: 062
     Dates: start: 201205, end: 201207
  3. DUROGESIC [Concomitant]
     Dosage: 50 mcg/h
     Route: 062

REACTIONS (4)
  - Drug dependence [Unknown]
  - Overdose [Unknown]
  - Off label use [Recovered/Resolved]
  - Intentional drug misuse [Unknown]
